FAERS Safety Report 17163766 (Version 1)
Quarter: 2019Q4

REPORT INFORMATION
  Report Type: Spontaneous
  Country: IN (occurrence: IN)
  Receive Date: 20191217
  Receipt Date: 20191217
  Transmission Date: 20200122
  Serious: Yes (Hospitalization)
  Sender: FDA-Public Use
  Company Number: IN-ZYDUS-044507

PATIENT
  Age: 54 Year
  Sex: Male

DRUGS (6)
  1. DEXAMETHASONE. [Suspect]
     Active Substance: DEXAMETHASONE
     Indication: PREMEDICATION
     Route: 065
  2. ONDANSETRON/ONDANSETRON HYDROCHLORIDE [Interacting]
     Active Substance: ONDANSETRON HYDROCHLORIDE
     Indication: PREMEDICATION
     Route: 065
  3. CARBOPLATIN. [Concomitant]
     Active Substance: CARBOPLATIN
  4. PACLITAXEL. [Interacting]
     Active Substance: PACLITAXEL
     Indication: LUNG SQUAMOUS CELL CARCINOMA STAGE IV
  5. RANITIDINE. [Suspect]
     Active Substance: RANITIDINE
     Indication: PREMEDICATION
  6. SODIUM CHLORIDE. [Concomitant]
     Active Substance: SODIUM CHLORIDE

REACTIONS (7)
  - Peripheral coldness [Recovered/Resolved]
  - Drug interaction [Recovered/Resolved]
  - Blood pressure abnormal [Recovered/Resolved]
  - Pulse absent [Recovered/Resolved]
  - Cardiogenic shock [Recovered/Resolved]
  - Hyperhidrosis [Recovered/Resolved]
  - Altered state of consciousness [Recovered/Resolved]
